FAERS Safety Report 11131863 (Version 1)
Quarter: 2015Q2

REPORT INFORMATION
  Report Type: Spontaneous
  Country: US (occurrence: US)
  Receive Date: 20150522
  Receipt Date: 20150522
  Transmission Date: 20150821
  Serious: Yes (Other)
  Sender: FDA-Public Use
  Company Number: US-TEVA-563963USA

PATIENT
  Sex: Female

DRUGS (13)
  1. PHENYTOIN. [Suspect]
     Active Substance: PHENYTOIN
     Indication: COMPLEX PARTIAL SEIZURES
     Route: 065
  2. LEVETIRACETAM. [Concomitant]
     Active Substance: LEVETIRACETAM
     Route: 065
  3. LEVETIRACETAM. [Concomitant]
     Active Substance: LEVETIRACETAM
     Route: 065
  4. METHYLPREDNISOLONE. [Concomitant]
     Active Substance: METHYLPREDNISOLONE
     Indication: EVIDENCE BASED TREATMENT
     Dosage: 1G DAILY
     Route: 042
  5. KETAMINE [Concomitant]
     Active Substance: KETAMINE
     Route: 041
  6. FOSPHENYTOIN [Concomitant]
     Active Substance: FOSPHENYTOIN\FOSPHENYTOIN SODIUM
     Indication: STATUS EPILEPTICUS
     Route: 042
  7. LORAZEPAM. [Concomitant]
     Active Substance: LORAZEPAM
     Indication: STATUS EPILEPTICUS
     Dosage: 0.1 MG/KG
     Route: 042
  8. LACOSAMIDE [Concomitant]
     Active Substance: LACOSAMIDE
     Route: 065
  9. PROPOFOL. [Concomitant]
     Active Substance: PROPOFOL
     Route: 041
  10. WARFARIN [Suspect]
     Active Substance: WARFARIN
     Route: 065
  11. CLONAZEPAM. [Concomitant]
     Active Substance: CLONAZEPAM
     Route: 065
  12. PENTOBARBITAL [Concomitant]
     Active Substance: PENTOBARBITAL
     Route: 050
  13. MIDAZOLAM [Concomitant]
     Active Substance: MIDAZOLAM\MIDAZOLAM HYDROCHLORIDE
     Route: 041

REACTIONS (2)
  - Encephalopathy [Unknown]
  - Coagulopathy [Recovered/Resolved]
